FAERS Safety Report 5389100-X (Version None)
Quarter: 2007Q3

REPORT INFORMATION
  Report Type: 
  Country: None (occurrence: None)
  Receive Date: 20070717
  Receipt Date: 20070704
  Transmission Date: 20080115
  Serious: Yes (Other)
  Sender: FDA-Public Use
  Company Number: DE-JNJFOC-20070701407

PATIENT
  Sex: Female

DRUGS (1)
  1. IMODIUM AD [Suspect]
     Indication: DRUG USE FOR UNKNOWN INDICATION
     Route: 060

REACTIONS (2)
  - DRUG ABUSER [None]
  - INTESTINAL OBSTRUCTION [None]
